FAERS Safety Report 7616694-3 (Version None)
Quarter: 2011Q3

REPORT INFORMATION
  Report Type: 
  Country: None (occurrence: None)
  Receive Date: 20110717
  Receipt Date: 20110708
  Transmission Date: 20111222
  Serious: Yes (Life-Threatening, Hospitalization)
  Sender: FDA-Public Use
  Company Number: PHHO2011FR11646

PATIENT
  Sex: Female

DRUGS (7)
  1. ATARAX [Concomitant]
  2. VINCRISTINE [Suspect]
     Indication: ACUTE LYMPHOCYTIC LEUKAEMIA
     Dosage: 2 MG, DAILY
     Dates: start: 20110628
  3. BACTRIM [Concomitant]
  4. OMEPRAZOLE [Concomitant]
  5. DOXORUBICIN HCL [Suspect]
     Indication: ACUTE LYMPHOCYTIC LEUKAEMIA
     Dosage: 36 MG, DAILY
     Dates: start: 20110628
  6. GLEEVEC [Suspect]
     Indication: ACUTE LYMPHOCYTIC LEUKAEMIA
     Dosage: 400 MG, UNK
     Route: 048
     Dates: start: 20110107
  7. TRANXENE [Concomitant]

REACTIONS (1)
  - SEPTIC SHOCK [None]
